FAERS Safety Report 5987035-2 (Version None)
Quarter: 2008Q4

REPORT INFORMATION
  Report Type: 
  Country: None (occurrence: None)
  Receive Date: 20081209
  Receipt Date: 20081128
  Transmission Date: 20090506
  Serious: Yes (Hospitalization)
  Sender: FDA-Public Use
  Company Number: B0549299A

PATIENT
  Age: 33 Year
  Sex: Female

DRUGS (2)
  1. CLAVAMOX [Suspect]
     Indication: COUGH
     Route: 048
     Dates: start: 20080909, end: 20080918
  2. ELOCON [Concomitant]

REACTIONS (4)
  - DRUG EXPOSURE DURING PREGNANCY [None]
  - PYREXIA [None]
  - RASH MACULO-PAPULAR [None]
  - TOXIC SKIN ERUPTION [None]
